FAERS Safety Report 4818135-8 (Version None)
Quarter: 2005Q4

REPORT INFORMATION
  Report Type: 
  Country: None (occurrence: None)
  Receive Date: 20051102
  Receipt Date: 20051026
  Transmission Date: 20060501
  Serious: Yes (Life-Threatening, Hospitalization, Other)
  Sender: FDA-Public Use
  Company Number: US-MERCK-0510USA09106

PATIENT
  Sex: Female
  Weight: 100 kg

DRUGS (2)
  1. FOSAMAX [Suspect]
     Route: 048
     Dates: start: 20050801, end: 20050801
  2. PROTONIX [Concomitant]
     Route: 065

REACTIONS (4)
  - ANASTOMOTIC ULCER PERFORATION [None]
  - GASTRITIS [None]
  - GASTROINTESTINAL PERFORATION [None]
  - PNEUMOPERITONEUM [None]
